FAERS Safety Report 7839060-4 (Version None)
Quarter: 2011Q4

REPORT INFORMATION
  Report Type: 
  Country: None (occurrence: None)
  Receive Date: 20111024
  Receipt Date: 20110928
  Transmission Date: 20120403
  Serious: No
  Sender: FDA-Public Use
  Company Number: PHHY2011BR86677

PATIENT
  Age: 68 Year
  Sex: Female
  Weight: 98 kg

DRUGS (10)
  1. LOSARTAN POTASSIUM [Suspect]
  2. AMLODIPINE [Suspect]
  3. RASILEZ [Suspect]
     Dosage: 300 MG, UNK
  4. HYDROCHLOROTHIAZIDE [Suspect]
  5. PROPRANOLOL [Suspect]
  6. GLYBURIDE [Suspect]
  7. NPH INSULIN [Suspect]
  8. SIMVASTATIN [Suspect]
  9. ATORVASTATIN [Suspect]
  10. METFORMIX [Suspect]

REACTIONS (2)
  - GLYCOSYLATED HAEMOGLOBIN INCREASED [None]
  - BLOOD GLUCOSE INCREASED [None]
